FAERS Safety Report 25240443 (Version 5)
Quarter: 2025Q2

REPORT INFORMATION
  Report Type: Spontaneous
  Country: US (occurrence: US)
  Receive Date: 20250425
  Receipt Date: 20250602
  Transmission Date: 20250716
  Serious: Yes (Hospitalization, Other)
  Sender: BIOVITRUM
  Company Number: US-BIOVITRUM-2025-US-005750

PATIENT
  Age: 10 Year

DRUGS (35)
  1. EMAPALUMAB [Suspect]
     Active Substance: EMAPALUMAB
     Indication: Haemophagocytic lymphohistiocytosis
  2. EMAPALUMAB [Suspect]
     Active Substance: EMAPALUMAB
     Dates: start: 2024
  3. EMAPALUMAB [Suspect]
     Active Substance: EMAPALUMAB
     Dates: start: 2024
  4. EMAPALUMAB [Suspect]
     Active Substance: EMAPALUMAB
     Dates: start: 2024
  5. EMAPALUMAB [Suspect]
     Active Substance: EMAPALUMAB
     Dates: start: 20240529
  6. EMAPALUMAB [Suspect]
     Active Substance: EMAPALUMAB
     Dates: start: 20240601
  7. EMAPALUMAB [Suspect]
     Active Substance: EMAPALUMAB
     Dates: start: 20240606
  8. EMAPALUMAB [Suspect]
     Active Substance: EMAPALUMAB
     Dates: start: 20240610
  9. EMAPALUMAB [Suspect]
     Active Substance: EMAPALUMAB
     Dates: start: 20240617
  10. EMAPALUMAB [Suspect]
     Active Substance: EMAPALUMAB
     Dates: start: 20240624
  11. EMAPALUMAB [Suspect]
     Active Substance: EMAPALUMAB
     Dates: start: 20240629
  12. EMAPALUMAB [Suspect]
     Active Substance: EMAPALUMAB
     Dates: start: 20240701
  13. EMAPALUMAB [Suspect]
     Active Substance: EMAPALUMAB
     Dates: start: 20240708
  14. EMAPALUMAB [Suspect]
     Active Substance: EMAPALUMAB
     Dates: start: 20240722
  15. EMAPALUMAB [Suspect]
     Active Substance: EMAPALUMAB
     Dates: start: 20240729
  16. EMAPALUMAB [Suspect]
     Active Substance: EMAPALUMAB
     Dates: start: 20240805
  17. EMAPALUMAB [Suspect]
     Active Substance: EMAPALUMAB
     Dates: start: 20240819
  18. EMAPALUMAB [Suspect]
     Active Substance: EMAPALUMAB
     Dates: start: 20241208
  19. EMAPALUMAB [Suspect]
     Active Substance: EMAPALUMAB
     Dates: end: 202502
  20. ANAKINRA [Suspect]
     Active Substance: ANAKINRA
     Indication: Still^s disease
     Route: 058
     Dates: start: 20231218, end: 202401
  21. CYCLOSPORINE [Suspect]
     Active Substance: CYCLOSPORINE
     Indication: Haemophagocytic lymphohistiocytosis
  22. CANAKINUMAB [Suspect]
     Active Substance: CANAKINUMAB
     Indication: Still^s disease
     Route: 058
     Dates: start: 20221118, end: 20231211
  23. CANAKINUMAB [Suspect]
     Active Substance: CANAKINUMAB
     Route: 058
     Dates: start: 20231211, end: 20241220
  24. CANAKINUMAB [Suspect]
     Active Substance: CANAKINUMAB
     Route: 058
     Dates: start: 20241220
  25. RUXOLITINIB [Concomitant]
     Active Substance: RUXOLITINIB
     Indication: Product used for unknown indication
  26. PREDNISONE [Concomitant]
     Active Substance: PREDNISONE
     Indication: Product used for unknown indication
  27. FERROUS SULFATE [Concomitant]
     Active Substance: FERROUS SULFATE
     Indication: Product used for unknown indication
  28. FAMOTIDINE [Concomitant]
     Active Substance: FAMOTIDINE
     Indication: Product used for unknown indication
  29. BACTRIM [Concomitant]
     Active Substance: SULFAMETHOXAZOLE\TRIMETHOPRIM
     Indication: Product used for unknown indication
  30. ACYCLOVIR [Concomitant]
     Active Substance: ACYCLOVIR
     Indication: Product used for unknown indication
  31. ISAVUCONAZONIUM SULFATE [Concomitant]
     Active Substance: ISAVUCONAZONIUM SULFATE
     Indication: Product used for unknown indication
  32. CALCIUM CARBONATE [Concomitant]
     Active Substance: CALCIUM CARBONATE
     Indication: Product used for unknown indication
  33. CHOLECALCIFEROL [Concomitant]
     Active Substance: CHOLECALCIFEROL
     Indication: Product used for unknown indication
  34. TOPIRAMATE [Concomitant]
     Active Substance: TOPIRAMATE
     Indication: Product used for unknown indication
  35. HYDROXYZINE [Concomitant]
     Active Substance: HYDROXYZINE HYDROCHLORIDE
     Indication: Product used for unknown indication

REACTIONS (11)
  - Mycobacterium avium complex infection [Unknown]
  - Pyrexia [Unknown]
  - Pelvic pain [Unknown]
  - Fatigue [Unknown]
  - Osteomyelitis [Unknown]
  - Off label use [Unknown]
  - Arthralgia [Not Recovered/Not Resolved]
  - Headache [Not Recovered/Not Resolved]
  - Bone lesion [Unknown]
  - Respiratory syncytial virus test positive [Recovered/Resolved]
  - Seizure [Unknown]

NARRATIVE: CASE EVENT DATE: 20240101
